FAERS Safety Report 19801434 (Version 1)
Quarter: 2021Q3

REPORT INFORMATION
  Report Type: Other
  Country: CA (occurrence: CA)
  Receive Date: 20210908
  Receipt Date: 20210908
  Transmission Date: 20211014
  Serious: Yes (Hospitalization)
  Sender: FDA-Public Use
  Company Number: CA-CELLTRION INC.-2021CA011839

PATIENT

DRUGS (10)
  1. SYNTHROID [Concomitant]
     Active Substance: LEVOTHYROXINE SODIUM
  2. INSULIN [Concomitant]
     Active Substance: INSULIN NOS
     Dosage: (DOSAGE FORM: GLOBULES ORAL)
  3. PREDNISONE. [Concomitant]
     Active Substance: PREDNISONE
  4. RAMIPRIL. [Concomitant]
     Active Substance: RAMIPRIL
  5. OMEGA 3 [DOCOSAHEXAENOIC ACID;EICOSAPENTAENOIC ACID] [Concomitant]
     Active Substance: DOCONEXENT\ICOSAPENT
  6. PARIET [Concomitant]
     Active Substance: RABEPRAZOLE SODIUM
  7. FOLIC ACID. [Concomitant]
     Active Substance: FOLIC ACID
  8. TRAJENTA [Concomitant]
     Active Substance: LINAGLIPTIN
  9. RITUXIMAB. [Suspect]
     Active Substance: RITUXIMAB
     Indication: RHEUMATOID ARTHRITIS
     Dosage: 1000.00 MILLIGRAM
     Route: 042
  10. METFORMIN [Concomitant]
     Active Substance: METFORMIN HYDROCHLORIDE
     Route: 065

REACTIONS (4)
  - Pneumonia [Unknown]
  - Folate deficiency [Unknown]
  - Magnesium deficiency [Unknown]
  - Hypertension [Unknown]
